FAERS Safety Report 6097971-7 (Version None)
Quarter: 2009Q1

REPORT INFORMATION
  Report Type: 
  Country: None (occurrence: None)
  Receive Date: 20090227
  Receipt Date: 20090218
  Transmission Date: 20090719
  Serious: Yes (Other)
  Sender: FDA-Public Use
  Company Number: FI-ASTRAZENECA-2009SE00812

PATIENT
  Age: 42 Year
  Sex: Female

DRUGS (5)
  1. ATACAND [Suspect]
     Indication: HYPERTENSION
     Route: 048
     Dates: start: 20080101, end: 20090101
  2. LEPONEX [Interacting]
     Indication: HALLUCINATION, AUDITORY
     Route: 048
  3. ANTABUSE [Concomitant]
     Dates: start: 20081201, end: 20090101
  4. SOMAC [Concomitant]
     Route: 048
  5. MULTI-TABS [Concomitant]
     Dates: end: 20090101

REACTIONS (6)
  - ABDOMINAL PAIN UPPER [None]
  - DRUG INTERACTION [None]
  - HYPERSENSITIVITY [None]
  - LIP SWELLING [None]
  - PARAESTHESIA [None]
  - PHARYNGEAL OEDEMA [None]
